FAERS Safety Report 9606051 (Version 1)
Quarter: 2013Q4

REPORT INFORMATION
  Report Type: Spontaneous
  Country: US (occurrence: US)
  Receive Date: 20131008
  Receipt Date: 20131008
  Transmission Date: 20140711
  Serious: No
  Sender: FDA-Public Use
  Company Number: US-AMGEN-USASP2013040853

PATIENT
  Age: 68 Year
  Sex: Female

DRUGS (1)
  1. PROLIA [Suspect]
     Indication: OSTEOPOROSIS
     Dosage: UNK
     Dates: start: 20130505

REACTIONS (9)
  - Pain in jaw [Unknown]
  - Ear pain [Unknown]
  - Headache [Unknown]
  - Sinus headache [Unknown]
  - Hot flush [Unknown]
  - Heart rate increased [Unknown]
  - Cystitis [Unknown]
  - Asthenia [Unknown]
  - Fatigue [Unknown]
